FAERS Safety Report 7733726-2 (Version None)
Quarter: 2011Q3

REPORT INFORMATION
  Report Type: 
  Country: None (occurrence: None)
  Receive Date: 20110907
  Receipt Date: 20110831
  Transmission Date: 20111222
  Serious: Yes (Disabling, Other)
  Sender: FDA-Public Use
  Company Number: GB-B.I. PHARMACEUTICALS,INC./RIDGEFIELD-2011-BP-21458YA

PATIENT
  Age: 70 Year
  Sex: Male
  Weight: 84 kg

DRUGS (3)
  1. RAMIPRIL [Concomitant]
     Route: 065
  2. TAMSULOSIN HCL [Suspect]
     Route: 048
     Dates: start: 20110525
  3. ASPIRIN [Concomitant]
     Route: 065

REACTIONS (4)
  - ABDOMINAL DISCOMFORT [None]
  - ABDOMINAL DISTENSION [None]
  - COLITIS MICROSCOPIC [None]
  - DIARRHOEA [None]
